FAERS Safety Report 8113139-4 (Version None)
Quarter: 2011Q4

REPORT INFORMATION
  Report Type: 
  Country: None (occurrence: None)
  Receive Date: 20111227
  Receipt Date: 20111018
  Transmission Date: 20120403
  Serious: Yes (Hospitalization)
  Sender: FDA-Public Use
  Company Number: PHEH2011US07133

PATIENT
  Sex: Female
  Weight: 83.9 kg

DRUGS (17)
  1. NITROFURANTOIN [Concomitant]
  2. BYSTOLIC [Concomitant]
  3. GILENYA [Suspect]
     Indication: MULTIPLE SCLEROSIS
     Dosage: 0.5 MG, QD, ORAL
     Route: 048
  4. CITRACAL + D (CALCIUM CITRATE, ERGOCALCIFEROL) [Concomitant]
  5. VICODIN [Concomitant]
  6. RITALIN [Concomitant]
  7. VITAMIN D [Concomitant]
  8. CYMBALTA [Concomitant]
  9. NEURONTIN [Concomitant]
  10. BETHANECHOL (BETHANECHOL) [Concomitant]
  11. POTASSIUM CHLORIDE [Concomitant]
  12. BACLOFEN [Concomitant]
  13. ASCORBIC ACID [Concomitant]
  14. FAMOTIDINE [Concomitant]
  15. NEXIUM [Concomitant]
  16. LORAZEPAM [Concomitant]
  17. MULTIVITAMIN [Concomitant]

REACTIONS (1)
  - MULTIPLE SCLEROSIS RELAPSE [None]
